FAERS Safety Report 20036270 (Version 1)
Quarter: 2021Q4

REPORT INFORMATION
  Report Type: Spontaneous
  Country: NL (occurrence: NL)
  Receive Date: 20211105
  Receipt Date: 20211105
  Transmission Date: 20220303
  Serious: Yes (Congenital Anomaly)
  Sender: FDA-Public Use
  Company Number: None

PATIENT
  Sex: Male

DRUGS (1)
  1. LETROZOLE [Suspect]
     Active Substance: LETROZOLE
     Indication: Polycystic ovaries
     Dosage: 2.5 MILLIGRAM DAILY; 2.5 MG, THERAPY START AND END DATE: ASKU
     Route: 065

REACTIONS (3)
  - Multiple congenital abnormalities [Unknown]
  - Talipes [Unknown]
  - Maternal exposure during pregnancy [Unknown]
